FAERS Safety Report 18452118 (Version 14)
Quarter: 2022Q1

REPORT INFORMATION
  Report Type: Report from Study
  Country: CA (occurrence: CA)
  Receive Date: 20201102
  Receipt Date: 20220119
  Transmission Date: 20220423
  Serious: Yes (Hospitalization, Other)
  Sender: FDA-Public Use
  Company Number: PHHY2019CA199798

PATIENT
  Age: 71 Year
  Sex: Female

DRUGS (6)
  1. SANDOSTATIN LAR DEPOT [Suspect]
     Active Substance: OCTREOTIDE ACETATE
     Indication: Carcinoid tumour
     Dosage: 30 MG, QMO
     Route: 030
     Dates: start: 20190204
  2. SANDOSTATIN LAR DEPOT [Suspect]
     Active Substance: OCTREOTIDE ACETATE
     Dosage: 40 MG, Q2W
     Route: 030
     Dates: start: 20190204
  3. SANDOSTATIN LAR DEPOT [Suspect]
     Active Substance: OCTREOTIDE ACETATE
     Dosage: 50 MG, Q2W
     Route: 030
  4. SANDOSTATIN LAR DEPOT [Suspect]
     Active Substance: OCTREOTIDE ACETATE
     Dosage: 40 MG, Q2W
     Route: 030
  5. SANDOSTATIN LAR DEPOT [Suspect]
     Active Substance: OCTREOTIDE ACETATE
     Dosage: 50 MG, Q2W
     Route: 030
     Dates: start: 20211021
  6. SANDOSTATIN LAR DEPOT [Suspect]
     Active Substance: OCTREOTIDE ACETATE
     Dosage: 40 MG, BIW
     Route: 030

REACTIONS (22)
  - Fall [Unknown]
  - Generalised tonic-clonic seizure [Unknown]
  - Nasopharyngitis [Unknown]
  - Nocturnal dyspnoea [Unknown]
  - Carcinoid tumour [Unknown]
  - Malignant neoplasm progression [Unknown]
  - Vomiting [Not Recovered/Not Resolved]
  - Nausea [Not Recovered/Not Resolved]
  - Heart rate decreased [Unknown]
  - Blood pressure systolic increased [Unknown]
  - Weight decreased [Unknown]
  - Pallor [Unknown]
  - General physical condition abnormal [Unknown]
  - Dysarthria [Unknown]
  - Lid sulcus deepened [Unknown]
  - Dizziness [Unknown]
  - Dyspnoea [Unknown]
  - Abdominal distension [Unknown]
  - Fatigue [Unknown]
  - Asthenia [Unknown]
  - Drug ineffective [Unknown]
  - Inappropriate schedule of product administration [Unknown]

NARRATIVE: CASE EVENT DATE: 20190822
